FAERS Safety Report 5127510-6 (Version None)
Quarter: 2006Q4

REPORT INFORMATION
  Report Type: 
  Country: None (occurrence: None)
  Receive Date: 20061010
  Receipt Date: 20060927
  Transmission Date: 20070319
  Serious: Yes (Life-Threatening, Other)
  Sender: FDA-Public Use
  Company Number: 2006118489

PATIENT

DRUGS (2)
  1. LYRICA [Suspect]
     Dosage: ORAL
     Route: 048
  2. OPIOIDS [Concomitant]

REACTIONS (4)
  - COORDINATION ABNORMAL [None]
  - OVERDOSE [None]
  - SELF-MEDICATION [None]
  - SUICIDE ATTEMPT [None]
